FAERS Safety Report 22125430 (Version 1)
Quarter: 2023Q1

REPORT INFORMATION
  Report Type: Report from Study
  Country: US (occurrence: US)
  Receive Date: 20230322
  Receipt Date: 20230322
  Transmission Date: 20230418
  Serious: Yes (Other)
  Sender: FDA-Public Use
  Company Number: US-UCBSA-2023013897

PATIENT
  Sex: Female

DRUGS (2)
  1. VIMPAT [Suspect]
     Active Substance: LACOSAMIDE
     Indication: Seizure
     Dosage: 200 MILLIGRAM, 2X/DAY (BID) 1 TABLET
  2. VIMPAT [Suspect]
     Active Substance: LACOSAMIDE
     Dosage: UNK

REACTIONS (3)
  - Loss of consciousness [Unknown]
  - Seizure [Unknown]
  - Blister [Unknown]
